FAERS Safety Report 24194959 (Version 1)
Quarter: 2024Q3

REPORT INFORMATION
  Report Type: Spontaneous
  Country: CN (occurrence: CN)
  Receive Date: 20240809
  Receipt Date: 20240809
  Transmission Date: 20241017
  Serious: Yes (Hospitalization, Other)
  Sender: BAYER
  Company Number: CN-BAYER-2024A115091

PATIENT
  Age: 92 Year
  Sex: Male

DRUGS (1)
  1. GLUCOBAY [Suspect]
     Active Substance: ACARBOSE
     Indication: Diabetes mellitus
     Dosage: 1 DF, TID
     Route: 048
     Dates: start: 20240110, end: 20240507

REACTIONS (13)
  - Gastritis erosive [Recovering/Resolving]
  - Duodenitis [Recovering/Resolving]
  - Abdominal discomfort [Recovering/Resolving]
  - Upper airway obstruction [None]
  - Gastrooesophageal reflux disease [None]
  - Dyspepsia [None]
  - Decreased appetite [None]
  - Oesophageal mucosal hyperplasia [None]
  - Leiomyoma [None]
  - Gastric polyps [None]
  - Dizziness [None]
  - Nausea [None]
  - Breath sounds abnormal [None]

NARRATIVE: CASE EVENT DATE: 20240101
